FAERS Safety Report 9193717 (Version 2)
Quarter: 2013Q2

REPORT INFORMATION
  Report Type: Spontaneous
  Country: US (occurrence: US)
  Receive Date: 20130327
  Receipt Date: 20130411
  Transmission Date: 20140414
  Serious: No
  Sender: FDA-Public Use
  Company Number: US-PFIZER INC-2013096352

PATIENT
  Age: 61 Year
  Sex: Female
  Weight: 94.33 kg

DRUGS (5)
  1. LIPITOR [Suspect]
     Indication: BLOOD CHOLESTEROL INCREASED
     Dosage: 5 MG, ONCE DAILY
     Route: 048
  2. LIPITOR [Suspect]
     Dosage: 10 MG, ONCE DAILY
     Route: 048
  3. LIPITOR [Suspect]
     Dosage: 20 MG, ONCE DAILY
     Route: 048
  4. BENICAR [Concomitant]
     Indication: HYPERTENSION
     Dosage: UNK
  5. CALCIUM [Concomitant]
     Dosage: UNK

REACTIONS (3)
  - Fall [Not Recovered/Not Resolved]
  - Gait disturbance [Not Recovered/Not Resolved]
  - Pain in extremity [Not Recovered/Not Resolved]
